FAERS Safety Report 13819353 (Version 1)
Quarter: 2017Q3

REPORT INFORMATION
  Report Type: Report from Study
  Country: US (occurrence: US)
  Receive Date: 20170731
  Receipt Date: 20170731
  Transmission Date: 20171127
  Serious: No
  Sender: FDA-Public Use
  Company Number: US-EXELIXIS-CABO-16007751

PATIENT
  Sex: Male

DRUGS (9)
  1. ASPIRIN. [Concomitant]
     Active Substance: ASPIRIN
  2. CABOMETYX [Suspect]
     Active Substance: CABOZANTINIB S-MALATE
     Indication: RENAL CANCER
     Dosage: 60 MG, QD
     Route: 048
     Dates: start: 20160810
  3. ANTIHISTAMINES [Concomitant]
     Active Substance: ANTIHISTAMINES NOS
  4. DECONGESTANT [Concomitant]
     Active Substance: UNSPECIFIED INGREDIENT
  5. DEXAMETHASONE. [Concomitant]
     Active Substance: DEXAMETHASONE
  6. CABOMETYX [Suspect]
     Active Substance: CABOZANTINIB S-MALATE
     Indication: METASTASES TO BONE
     Dosage: 40 MG, QD
     Route: 048
     Dates: start: 20160928
  7. LEVOTHYROXINE. [Concomitant]
     Active Substance: LEVOTHYROXINE
  8. OMEPRAZOLE. [Concomitant]
     Active Substance: OMEPRAZOLE
  9. BROMALINE [Concomitant]

REACTIONS (8)
  - Rhinorrhoea [Unknown]
  - Impaired healing [Unknown]
  - Dyspnoea [Not Recovered/Not Resolved]
  - Blister [Unknown]
  - Somnolence [Unknown]
  - Skin fissures [Unknown]
  - Skin wound [Unknown]
  - Cough [Not Recovered/Not Resolved]
